FAERS Safety Report 19553853 (Version 2)
Quarter: 2021Q3

REPORT INFORMATION
  Report Type: Report from Study
  Country: IE (occurrence: IE)
  Receive Date: 20210714
  Receipt Date: 20210810
  Transmission Date: 20211014
  Serious: Yes (Hospitalization, Other)
  Sender: FDA-Public Use
  Company Number: IE-SA-2021SA021774

PATIENT
  Age: 73 Year
  Sex: Female

DRUGS (52)
  1. AGALSIDASE BETA [Suspect]
     Active Substance: AGALSIDASE BETA
     Dosage: 55 MG, QOW
     Route: 041
     Dates: start: 20150423
  2. CALCIUM [Concomitant]
     Active Substance: CALCIUM
     Dosage: 500 MG
     Route: 050
  3. LERCANIDIPINE TEVA [Concomitant]
     Dosage: 40MG
     Route: 050
  4. METHOTREXATE. [Concomitant]
     Active Substance: METHOTREXATE
     Dosage: 17.5 MG
  5. OLMESARTAN [Concomitant]
     Active Substance: OLMESARTAN
     Dosage: 10 MG, QD
     Route: 050
  6. OMESAR [OMEPRAZOLE] [Concomitant]
  7. NU SEALS [Concomitant]
     Dosage: 75 MG
     Route: 050
  8. AGALSIDASE BETA [Suspect]
     Active Substance: AGALSIDASE BETA
     Indication: FABRY^S DISEASE
     Dosage: 55 MG, QOW
     Route: 041
     Dates: start: 20111220
  9. FOLIC ACID. [Concomitant]
     Active Substance: FOLIC ACID
     Dosage: 5 MG
     Route: 050
  10. FOLIC ACID. [Concomitant]
     Active Substance: FOLIC ACID
     Dosage: 5MG
     Route: 050
  11. OLMESARTAN [Concomitant]
     Active Substance: OLMESARTAN
  12. NU SEALS [Concomitant]
     Dosage: 75 MG
  13. DELTACORTRIL [Concomitant]
     Active Substance: PREDNISOLONE
     Dosage: 5 MG, TID
     Route: 050
  14. DELTACORTRIL [Concomitant]
     Active Substance: PREDNISOLONE
  15. ASPIRIN. [Concomitant]
     Active Substance: ASPIRIN
     Dosage: 40 MG
  16. ASPIRIN. [Concomitant]
     Active Substance: ASPIRIN
     Dosage: 75 MG
     Route: 050
  17. ESOMEPRAZOLE. [Concomitant]
     Active Substance: ESOMEPRAZOLE MAGNESIUM
     Dosage: 20 MG
  18. FRUSEMIDE [FUROSEMIDE] [Concomitant]
     Active Substance: FUROSEMIDE
     Dosage: 40MG
     Route: 050
  19. LIPITOR [Concomitant]
     Active Substance: ATORVASTATIN CALCIUM
     Dosage: 40MG
     Route: 050
  20. OLMESARTAN [Concomitant]
     Active Substance: OLMESARTAN
     Dosage: 10MG
  21. ROACTEMRA [Concomitant]
     Active Substance: TOCILIZUMAB
     Dosage: 1 DF, QW
     Route: 050
  22. WARFARIN [Concomitant]
     Active Substance: WARFARIN
     Dosage: 5 MG, QD
  23. AGALSIDASE BETA [Suspect]
     Active Substance: AGALSIDASE BETA
     Dosage: 55 MG, QOW
     Dates: start: 202106
  24. PREDNISOLONE. [Concomitant]
     Active Substance: PREDNISOLONE
     Dosage: 20MG (TAPERING DOSE)
  25. CALCIUM [Concomitant]
     Active Substance: CALCIUM
     Dosage: 500 MG
  26. LERCANIDIPINE TEVA [Concomitant]
     Dosage: 20 MG
     Route: 050
  27. LIPITOR [Concomitant]
     Active Substance: ATORVASTATIN CALCIUM
     Dosage: 40 MG
     Route: 050
  28. SALAZOPYRIN [Concomitant]
     Active Substance: SULFASALAZINE
     Dosage: 1500MG
     Route: 050
  29. OMESAR [OMEPRAZOLE] [Concomitant]
     Dosage: 40 MG
     Route: 050
  30. LERCANIDIPINE [Concomitant]
     Active Substance: LERCANIDIPINE
     Dosage: 20 MG
  31. LIPITOR [Concomitant]
     Active Substance: ATORVASTATIN CALCIUM
     Dosage: 75 MG
  32. OLMESARTAN [Concomitant]
     Active Substance: OLMESARTAN
     Dosage: 10 MG, QD
     Route: 050
  33. SALAZOPYRIN [Concomitant]
     Active Substance: SULFASALAZINE
     Dosage: 5MG
  34. OMESAR [OMEPRAZOLE] [Concomitant]
     Dosage: 40 MG
  35. ROACTEMRA [Concomitant]
     Active Substance: TOCILIZUMAB
  36. LERCANIDIPINE [Concomitant]
     Active Substance: LERCANIDIPINE
     Dosage: 20 MG
  37. CALCIUM [Concomitant]
     Active Substance: CALCIUM
     Dosage: 500 MG
     Route: 050
  38. ESOMEPRAZOLE. [Concomitant]
     Active Substance: ESOMEPRAZOLE MAGNESIUM
     Dosage: 20 MG, QD
     Route: 050
  39. FRUSEMIDE [FUROSEMIDE] [Concomitant]
     Active Substance: FUROSEMIDE
     Dosage: 40 MG, QD
     Route: 050
  40. AGALSIDASE BETA [Suspect]
     Active Substance: AGALSIDASE BETA
     Dosage: 55 MG, QOW
     Dates: start: 20210120, end: 202106
  41. FOLIC ACID. [Concomitant]
     Active Substance: FOLIC ACID
     Dosage: 5 MG
  42. LIPITOR [Concomitant]
     Active Substance: ATORVASTATIN CALCIUM
     Dosage: 40MG
  43. METHOTREXATE. [Concomitant]
     Active Substance: METHOTREXATE
     Route: 050
  44. SALAZOPYRIN [Concomitant]
     Active Substance: SULFASALAZINE
     Dosage: 1500 MG
     Route: 050
  45. SALAZOPYRIN [Concomitant]
     Active Substance: SULFASALAZINE
     Dosage: 1500 MG
  46. OMESAR [OMEPRAZOLE] [Concomitant]
     Dosage: 40 MG
     Route: 050
  47. ROACTEMRA [Concomitant]
     Active Substance: TOCILIZUMAB
  48. ESOMEPRAZOLE. [Concomitant]
     Active Substance: ESOMEPRAZOLE MAGNESIUM
     Dosage: 20 MG
     Route: 050
  49. LIPITOR [Concomitant]
     Active Substance: ATORVASTATIN CALCIUM
     Dosage: 40 MG
  50. METHOTREXATE. [Concomitant]
     Active Substance: METHOTREXATE
     Dosage: 17.5 MG
     Route: 050
  51. WARFARIN [Concomitant]
     Active Substance: WARFARIN
     Dosage: 5 MG
  52. DELTACORTRIL [Concomitant]
     Active Substance: PREDNISOLONE
     Dosage: 5 MG

REACTIONS (13)
  - Syncope [Unknown]
  - Fall [Recovering/Resolving]
  - Dizziness [Not Recovered/Not Resolved]
  - Blood pressure decreased [Not Recovered/Not Resolved]
  - Arthralgia [Not Recovered/Not Resolved]
  - Hypertension [Unknown]
  - Product dose omission issue [Unknown]
  - Orthostatic hypotension [Recovered/Resolved]
  - Bradycardia [Not Recovered/Not Resolved]
  - Osteonecrosis [Recovered/Resolved]
  - Vein rupture [Not Recovered/Not Resolved]
  - Convalescent [Recovered/Resolved]
  - Asthenia [Not Recovered/Not Resolved]

NARRATIVE: CASE EVENT DATE: 20201223
